FAERS Safety Report 9524195 (Version 1)
Quarter: 2013Q1

REPORT INFORMATION
  Report Type: Spontaneous
  Country: US (occurrence: None)
  Receive Date: 20130305
  Receipt Date: 20130305
  Transmission Date: 20140127
  Serious: Yes (Hospitalization, Other)
  Sender: FDA-Public Use
  Company Number: 163-21880-12020797

PATIENT
  Age: 79 Year
  Sex: Male

DRUGS (2)
  1. REVLIMID ( LENALIDOMIDE) (25 MILLIGRAM, CAPSULES) [Suspect]
     Indication: PLASMA CELL MYELOMA
     Route: 048
     Dates: start: 200811
  2. VELCADE (UNKNOWN) [Concomitant]

REACTIONS (3)
  - Pneumonia [None]
  - Neutrophil count decreased [None]
  - Bone marrow failure [None]
